FAERS Safety Report 24834840 (Version 3)
Quarter: 2025Q2

REPORT INFORMATION
  Report Type: Report from Study
  Country: US (occurrence: US)
  Receive Date: 20250113
  Receipt Date: 20250515
  Transmission Date: 20250717
  Serious: Yes (Other)
  Sender: ABBVIE
  Company Number: US-ABBVIE-6075031

PATIENT
  Sex: Male

DRUGS (1)
  1. LINZESS [Suspect]
     Active Substance: LINACLOTIDE
     Indication: Product used for unknown indication
     Route: 048

REACTIONS (5)
  - Suicidal ideation [Unknown]
  - Cough [Unknown]
  - Anxiety [Not Recovered/Not Resolved]
  - Memory impairment [Unknown]
  - Unevaluable event [Not Recovered/Not Resolved]
